FAERS Safety Report 10894085 (Version 1)
Quarter: 2015Q1

REPORT INFORMATION
  Report Type: Report from Study
  Country: BE (occurrence: BE)
  Receive Date: 20150306
  Receipt Date: 20150306
  Transmission Date: 20150721
  Serious: Yes (Hospitalization)
  Sender: FDA-Public Use
  Company Number: BE-ABBVIE-14P-013-1201511-00

PATIENT
  Sex: Female

DRUGS (4)
  1. DUODOPA [Suspect]
     Active Substance: CARBIDOPA\LEVODOPA
     Indication: PARKINSON^S DISEASE
     Dosage: UNKNOWN
     Route: 050
     Dates: start: 20090602, end: 20090605
  2. DUODOPA [Suspect]
     Active Substance: CARBIDOPA\LEVODOPA
     Dosage: AM DOSE= 6ML, CONTIN DOSE= 2.6ML/H DURING 16HRS, EXTRA DOSE= 1ML
     Route: 050
     Dates: start: 20090605, end: 20090608
  3. DUODOPA [Suspect]
     Active Substance: CARBIDOPA\LEVODOPA
     Dosage: DOSAGE CONTINUOUSLY MONITORED AND ADJUSTED
     Route: 050
     Dates: start: 20090608, end: 20150115
  4. DUODOPA [Suspect]
     Active Substance: CARBIDOPA\LEVODOPA
     Dosage: AM = 5 ML, CD = 2.9 ML/H DURING 16H, ED = 1 ML
     Route: 050
     Dates: start: 20150115

REACTIONS (2)
  - Transient ischaemic attack [Recovered/Resolved]
  - Dyskinesia [Unknown]
